FAERS Safety Report 9425530 (Version 1)
Quarter: 2013Q3

REPORT INFORMATION
  Report Type: Spontaneous
  Country: US (occurrence: US)
  Receive Date: 20130729
  Receipt Date: 20130729
  Transmission Date: 20140515
  Serious: No
  Sender: FDA-Public Use
  Company Number: US-MYLANLABS-2012S1016008

PATIENT
  Age: 79 Year
  Sex: Female

DRUGS (3)
  1. LEVOTHYROXINE SODIUM TABLETS, USP [Suspect]
     Indication: THYROID HORMONE REPLACEMENT THERAPY
     Route: 048
     Dates: start: 20111207, end: 20120519
  2. LEVOTHYROXINE SODIUM TABLETS, USP [Suspect]
     Indication: HYPOTHYROIDISM
     Route: 048
     Dates: start: 20111207, end: 20120519
  3. SYNTHROID [Suspect]
     Indication: THYROID HORMONE REPLACEMENT THERAPY

REACTIONS (5)
  - Hypersensitivity [Recovered/Resolved]
  - Formication [Recovered/Resolved]
  - Burning sensation [Recovered/Resolved]
  - Furuncle [Recovered/Resolved]
  - Psoriasis [Not Recovered/Not Resolved]
